FAERS Safety Report 18452811 (Version 2)
Quarter: 2020Q4

REPORT INFORMATION
  Report Type: Spontaneous
  Country: MX (occurrence: MX)
  Receive Date: 20201102
  Receipt Date: 20201201
  Transmission Date: 20210114
  Serious: Yes (Hospitalization)
  Sender: FDA-Public Use
  Company Number: MX-ASTRAZENECA-2020SF40464

PATIENT
  Age: 71 Year
  Sex: Female

DRUGS (3)
  1. BENRALIZUMAB. [Suspect]
     Active Substance: BENRALIZUMAB
     Indication: ASTHMA
     Dosage: 30.0MG/ML ONCE/SINGLE ADMINISTRATION
     Route: 058
  2. COMBINATION OF A HIGH-DOSE INHALED CORTICOSTEROID AND A LONG ACTING... [Concomitant]
     Indication: ASTHMA
     Route: 065
  3. SYSTEMIC CORTICOSTEROIDS [Concomitant]
     Active Substance: CORTICOSTEROID NOS
     Indication: ASTHMA
     Route: 065

REACTIONS (1)
  - Cytokine release syndrome [Recovered/Resolved]
